FAERS Safety Report 18554092 (Version 1)
Quarter: 2020Q4

REPORT INFORMATION
  Report Type: Report from Study
  Country: BR (occurrence: BR)
  Receive Date: 20201127
  Receipt Date: 20201127
  Transmission Date: 20210114
  Serious: Yes (Other)
  Sender: FDA-Public Use
  Company Number: BR-TEVA-2020-BR-1853882

PATIENT
  Age: 37 Year
  Sex: Female

DRUGS (5)
  1. BUDECORT [Concomitant]
     Active Substance: BUDESONIDE
  2. KETOTIFEN 0.35MG [Concomitant]
     Indication: RHINITIS ALLERGIC
     Dosage: 1 DOSAGE FORMS DAILY; USED WHEN NEEDED
  3. CETIRIZINE 20MG [Concomitant]
     Indication: RHINITIS ALLERGIC
     Dosage: 1 DOSAGE FORMS DAILY; USED WHEN NEEDED
  4. COPAXONE [Suspect]
     Active Substance: GLATIRAMER ACETATE
     Indication: MULTIPLE SCLEROSIS
     Dates: start: 202002
  5. FAMOTIDINE 40MG [Concomitant]
     Active Substance: FAMOTIDINE
     Indication: RHINITIS ALLERGIC
     Dosage: 1 DOSAGE FORMS DAILY; USED WHEN NEEDED

REACTIONS (11)
  - Choking [Recovered/Resolved]
  - Abdominal discomfort [Recovered/Resolved]
  - Infection [Recovered/Resolved]
  - Hypersensitivity [Recovered/Resolved]
  - Urticaria [Recovered/Resolved]
  - Dyspnoea [Recovered/Resolved]
  - Cyanosis [Recovered/Resolved]
  - Sensory disturbance [Recovered/Resolved]
  - Throat tightness [Recovered/Resolved]
  - Palpitations [Recovered/Resolved]
  - Nausea [Recovered/Resolved]

NARRATIVE: CASE EVENT DATE: 20201118
